FAERS Safety Report 22305940 (Version 3)
Quarter: 2023Q2

REPORT INFORMATION
  Report Type: Spontaneous
  Country: CA (occurrence: CA)
  Receive Date: 20230511
  Receipt Date: 20230626
  Transmission Date: 20230722
  Serious: Yes (Hospitalization, Other)
  Sender: FDA-Public Use
  Company Number: CA-BEH-2023158387

PATIENT
  Age: 59 Year
  Sex: Male
  Weight: 89.9 kg

DRUGS (4)
  1. ALBUREX [Suspect]
     Active Substance: ALBUMIN HUMAN
     Indication: Generalised oedema
     Dosage: 100 MILLILITER
     Route: 065
     Dates: start: 20230430, end: 20230430
  2. ALBUREX [Suspect]
     Active Substance: ALBUMIN HUMAN
     Indication: Oliguria
  3. PIPERACILLIN SODIUM\TAZOBACTAM SODIUM [Concomitant]
     Active Substance: PIPERACILLIN SODIUM\TAZOBACTAM SODIUM
     Route: 042
  4. LASIX [Concomitant]
     Active Substance: FUROSEMIDE
     Dosage: UNK
     Route: 042
     Dates: end: 20230430

REACTIONS (17)
  - Pyrexia [Recovered/Resolved]
  - Hypotension [Recovered/Resolved]
  - Dyspnoea [Recovered/Resolved]
  - Wheezing [Recovered/Resolved]
  - Tachypnoea [Recovered/Resolved]
  - Fluid balance negative [Unknown]
  - Blood creatinine increased [Unknown]
  - Haemoglobinuria [Unknown]
  - Troponin increased [Unknown]
  - Abdominal pain [Unknown]
  - Back pain [Unknown]
  - Septic shock [Unknown]
  - Adrenal insufficiency [Unknown]
  - Lung cancer metastatic [Fatal]
  - Paraneoplastic syndrome [Fatal]
  - Generalised oedema [Fatal]
  - Respiratory failure [Fatal]

NARRATIVE: CASE EVENT DATE: 20230430
